FAERS Safety Report 4567149-4 (Version None)
Quarter: 2005Q1

REPORT INFORMATION
  Report Type: 
  Country: None (occurrence: None)
  Receive Date: 20050127
  Receipt Date: 20050122
  Transmission Date: 20050727
  Serious: Yes (Hospitalization)
  Sender: FDA-Public Use
  Company Number: 2004076861

PATIENT
  Age: 68 Year
  Sex: Male
  Weight: 91.6266 kg

DRUGS (5)
  1. LIPITOR [Suspect]
     Indication: BLOOD CHOLESTEROL INCREASED
     Dosage: 20 MG (1 IN 1 D) ORAL
     Route: 048
  2. CELEBREX [Suspect]
     Indication: ARTHRITIS
     Dosage: 200 MG (1 IN 1 D) ORAL
     Route: 048
     Dates: end: 20041001
  3. VERAPAMIL HCL [Concomitant]
  4. ASPIRIN [Concomitant]
  5. VITAMINS        (VITAMINS) [Concomitant]

REACTIONS (5)
  - ARTHRITIS [None]
  - BLOOD TRIGLYCERIDES INCREASED [None]
  - CARTILAGE INJURY [None]
  - DRUG INEFFECTIVE [None]
  - TREATMENT NONCOMPLIANCE [None]
